FAERS Safety Report 6936612-0 (Version None)
Quarter: 2010Q3

REPORT INFORMATION
  Report Type: 
  Country: None (occurrence: None)
  Receive Date: 20100823
  Receipt Date: 20100810
  Transmission Date: 20110219
  Serious: Yes (Hospitalization)
  Sender: FDA-Public Use
  Company Number: US-ROCHE-720523

PATIENT
  Age: 54 Year
  Sex: Female
  Weight: 59 kg

DRUGS (3)
  1. TRASTUZUMAB [Suspect]
     Route: 041
     Dates: start: 20100618, end: 20100630
  2. BEVACIZUMAB [Suspect]
     Route: 041
     Dates: start: 20100628, end: 20100730
  3. TAXOTERE [Suspect]
     Route: 041
     Dates: start: 20100618, end: 20100730

REACTIONS (2)
  - CHEST PAIN [None]
  - FEBRILE NEUTROPENIA [None]
